FAERS Safety Report 23065602 (Version 1)
Quarter: 2023Q4

REPORT INFORMATION
  Report Type: Spontaneous
  Country: SI (occurrence: SI)
  Receive Date: 20231014
  Receipt Date: 20231014
  Transmission Date: 20240109
  Serious: Yes (Hospitalization)
  Sender: FDA-Public Use
  Company Number: SI-JNJFOC-20230960231

PATIENT
  Age: 72 Year
  Sex: Male

DRUGS (9)
  1. RITUXIMAB [Suspect]
     Active Substance: RITUXIMAB
     Indication: Waldenstrom^s macroglobulinaemia
     Route: 065
     Dates: start: 202302
  2. VELCADE [Suspect]
     Active Substance: BORTEZOMIB
     Indication: Waldenstrom^s macroglobulinaemia
     Route: 065
     Dates: start: 202302
  3. DEXAMETHASONE [Suspect]
     Active Substance: DEXAMETHASONE
     Indication: Waldenstrom^s macroglobulinaemia
     Route: 065
     Dates: start: 202302
  4. ZOPICLONE [Concomitant]
     Active Substance: ZOPICLONE
  5. PERINDOPRIL [Concomitant]
     Active Substance: PERINDOPRIL
  6. VALTREX [Concomitant]
     Active Substance: VALACYCLOVIR HYDROCHLORIDE
  7. AMLODIPINE [Concomitant]
     Active Substance: AMLODIPINE BESYLATE
  8. ALLOPURINOL [Concomitant]
     Active Substance: ALLOPURINOL
  9. DUTASTERIDE\TAMSULOSIN [Concomitant]
     Active Substance: DUTASTERIDE\TAMSULOSIN

REACTIONS (3)
  - Gastroenteritis rotavirus [Unknown]
  - Off label use [Unknown]
  - Pneumonitis [Recovering/Resolving]

NARRATIVE: CASE EVENT DATE: 20230201
